FAERS Safety Report 22221596 (Version 1)
Quarter: 2023Q2

REPORT INFORMATION
  Report Type: Spontaneous
  Country: US (occurrence: None)
  Receive Date: 20230418
  Receipt Date: 20230418
  Transmission Date: 20230721
  Serious: Yes (Other)
  Sender: FDA-Public Use
  Company Number: US-ROCHE-3331482

PATIENT
  Age: 44 Year
  Sex: Female
  Weight: 61.290 kg

DRUGS (2)
  1. ACTEMRA [Suspect]
     Active Substance: TOCILIZUMAB
     Indication: Toxic encephalopathy
     Dosage: LAST DOSE ON 07/APR/2023
     Route: 065
     Dates: start: 20230330
  2. PREDNISONE [Suspect]
     Active Substance: PREDNISONE
     Indication: Toxic encephalopathy
     Route: 065

REACTIONS (6)
  - Pyrexia [Unknown]
  - Hyperhidrosis [Unknown]
  - Off label use [Unknown]
  - Ear pain [Unknown]
  - Deafness [Unknown]
  - Headache [Unknown]

NARRATIVE: CASE EVENT DATE: 20230401
